FAERS Safety Report 6499990-5 (Version None)
Quarter: 2009Q4

REPORT INFORMATION
  Report Type: 
  Country: None (occurrence: None)
  Receive Date: 20091216
  Receipt Date: 20090930
  Transmission Date: 20100525
  Serious: No
  Sender: FDA-Public Use
  Company Number: A0809749A

PATIENT
  Age: 49 Year
  Sex: Male

DRUGS (13)
  1. LAMICTAL XR [Suspect]
     Indication: DRUG USE FOR UNKNOWN INDICATION
     Dosage: 50MG PER DAY
     Route: 048
     Dates: start: 20090801, end: 20090901
  2. NORTRIPTYLINE HCL [Concomitant]
  3. AMLODIPINE [Concomitant]
  4. FEXOFENADINE HCL [Concomitant]
  5. VIRAMUNE [Concomitant]
  6. EFFEXOR [Concomitant]
  7. CELEBREX [Concomitant]
  8. COMBIVIR [Concomitant]
  9. FLUTICASONE PROPIONATE [Concomitant]
  10. KLONOPIN [Concomitant]
  11. HYDROCODONE [Concomitant]
  12. LASIX [Concomitant]
  13. WATER PILL [Concomitant]

REACTIONS (6)
  - BALANCE DISORDER [None]
  - COORDINATION ABNORMAL [None]
  - FALL [None]
  - HOT FLUSH [None]
  - HYPERHIDROSIS [None]
  - WEIGHT DECREASED [None]
